FAERS Safety Report 4512231-0 (Version None)
Quarter: 2004Q4

REPORT INFORMATION
  Report Type: 
  Country: None (occurrence: None)
  Receive Date: 20041123
  Receipt Date: 20041110
  Transmission Date: 20050328
  Serious: Yes (Hospitalization, Other)
  Sender: FDA-Public Use
  Company Number: 2004091496

PATIENT
  Age: 69 Year
  Sex: Male

DRUGS (4)
  1. VIAGRA [Suspect]
     Indication: ILL-DEFINED DISORDER
     Dosage: (25 MG), ORAL
     Route: 048
     Dates: start: 20041106
  2. BENDROFLUMETHIAZIDE (BENDROFLUMETHIAZIDE) [Concomitant]
  3. ASPIRIN [Concomitant]
  4. ZOPICLONE (ZOPICLONE) [Concomitant]

REACTIONS (5)
  - BLOOD PRESSURE DIASTOLIC INCREASED [None]
  - CIRCULATORY COLLAPSE [None]
  - DIZZINESS [None]
  - LOSS OF CONSCIOUSNESS [None]
  - NAUSEA [None]
